FAERS Safety Report 25912530 (Version 1)
Quarter: 2025Q4

REPORT INFORMATION
  Report Type: Spontaneous
  Country: CA (occurrence: CA)
  Receive Date: 20251013
  Receipt Date: 20251013
  Transmission Date: 20260117
  Serious: Yes (Other)
  Sender: BAUSCH AND LOMB
  Company Number: CA-BAUSCH-BH-2025-018522

PATIENT
  Age: 4 Decade

DRUGS (1)
  1. DESMOPRESSIN [Suspect]
     Active Substance: DESMOPRESSIN
     Indication: Diabetes insipidus
     Dosage: INTRANASAL
     Route: 045

REACTIONS (6)
  - Hypovolaemia [Unknown]
  - Acute kidney injury [Unknown]
  - Disease recurrence [Unknown]
  - Treatment noncompliance [Unknown]
  - Oedema [Unknown]
  - Abdominal distension [Unknown]
